FAERS Safety Report 23157266 (Version 4)
Quarter: 2023Q4

REPORT INFORMATION
  Report Type: Spontaneous
  Country: CA (occurrence: CA)
  Receive Date: 20231108
  Receipt Date: 20231206
  Transmission Date: 20240110
  Serious: Yes (Other)
  Sender: FDA-Public Use
  Company Number: CA-CELLTRION INC.-2023CA021406

PATIENT

DRUGS (6)
  1. INFLECTRA [Suspect]
     Active Substance: INFLIXIMAB-DYYB
     Indication: Rheumatoid arthritis
     Dosage: 300 MG, W0, W2, W6 AND THEN EVERY 8 WEEKS
     Route: 042
     Dates: start: 20230516
  2. INFLECTRA [Suspect]
     Active Substance: INFLIXIMAB-DYYB
     Dosage: 500 MG, EVERY 6 WEEKS
     Route: 042
     Dates: start: 20231006
  3. INFLECTRA [Suspect]
     Active Substance: INFLIXIMAB-DYYB
     Dosage: 500 MG, AFTER 6 WEEKS
     Route: 042
     Dates: start: 20231127
  4. METHOTREXATE [Concomitant]
     Active Substance: METHOTREXATE
     Indication: Rheumatoid arthritis
     Dosage: 25 MG, FREQUENCY UNKNOWN
     Route: 058
  5. PREDNISONE [Concomitant]
     Active Substance: PREDNISONE
     Dosage: UNK
  6. SULFASALAZINE [Concomitant]
     Active Substance: SULFASALAZINE
     Indication: Rheumatoid arthritis
     Dosage: 1 DF (UNKNOWN)

REACTIONS (4)
  - Aortic aneurysm [Not Recovered/Not Resolved]
  - Hypertension [Unknown]
  - Therapeutic response shortened [Unknown]
  - Off label use [Unknown]

NARRATIVE: CASE EVENT DATE: 20230101
